FAERS Safety Report 5798788-0 (Version None)
Quarter: 2008Q2

REPORT INFORMATION
  Report Type: 
  Country: None (occurrence: None)
  Receive Date: 20080630
  Receipt Date: 20080613
  Transmission Date: 20081010
  Serious: Yes (Hospitalization)
  Sender: FDA-Public Use
  Company Number: S08-IRL-02180-01

PATIENT
  Age: 25 Year
  Sex: Female

DRUGS (3)
  1. LEXAPRO [Suspect]
     Dosage: 200 MG ONCE PO
     Route: 048
     Dates: start: 20080101, end: 20080101
  2. LEXAPRO [Suspect]
     Dosage: 20 MG QD PO
     Route: 048
     Dates: start: 20080301
  3. ALCOHOL [Suspect]
     Dates: start: 20080101, end: 20080101

REACTIONS (4)
  - ALCOHOL USE [None]
  - DRUG EFFECT DECREASED [None]
  - INTENTIONAL SELF-INJURY [None]
  - OVERDOSE [None]
